FAERS Safety Report 6841162-6 (Version None)
Quarter: 2010Q3

REPORT INFORMATION
  Report Type: 
  Country: None (occurrence: None)
  Receive Date: 20100714
  Receipt Date: 20070625
  Transmission Date: 20110219
  Serious: No
  Sender: FDA-Public Use
  Company Number: US-PFIZER INC-2007053603

PATIENT
  Sex: Female
  Weight: 65.909 kg

DRUGS (3)
  1. CHANTIX [Suspect]
     Indication: SMOKING CESSATION THERAPY
     Route: 048
     Dates: start: 20070505
  2. PROZAC [Interacting]
  3. NICOTINE [Concomitant]

REACTIONS (5)
  - ABNORMAL DREAMS [None]
  - DRUG INTERACTION [None]
  - FATIGUE [None]
  - NAUSEA [None]
  - SKIN DISCOLOURATION [None]
